FAERS Safety Report 6190219-4 (Version None)
Quarter: 2009Q2

REPORT INFORMATION
  Report Type: 
  Country: None (occurrence: None)
  Receive Date: 20090514
  Receipt Date: 20090506
  Transmission Date: 20091009
  Serious: Yes (Other)
  Sender: FDA-Public Use
  Company Number: PHHY2009CA14663

PATIENT

DRUGS (1)
  1. CO-DIOVAN T32564+ [Suspect]
     Indication: HYPERTENSION
     Dosage: 160/12.5 MG EVERY DAY

REACTIONS (2)
  - ARRHYTHMIA [None]
  - CARDIAC DISORDER [None]
